FAERS Safety Report 13999674 (Version 4)
Quarter: 2017Q4

REPORT INFORMATION
  Report Type: Spontaneous
  Country: US (occurrence: US)
  Receive Date: 20170922
  Receipt Date: 20171115
  Transmission Date: 20180321
  Serious: No
  Sender: FDA-Public Use
  Company Number: PHEH2017US029799

PATIENT
  Sex: Female

DRUGS (2)
  1. MONOPRIL [Concomitant]
     Active Substance: FOSINOPRIL SODIUM
     Indication: PRODUCT USED FOR UNKNOWN INDICATION
     Route: 065
  2. PAZEO [Suspect]
     Active Substance: OLOPATADINE HYDROCHLORIDE
     Indication: DRY EYE
     Dosage: UNK
     Route: 047

REACTIONS (8)
  - Eye pruritus [Unknown]
  - Eye swelling [Unknown]
  - Eye irritation [Unknown]
  - Ocular hyperaemia [Unknown]
  - Eye allergy [Unknown]
  - Eyelid oedema [Unknown]
  - Lacrimation increased [Unknown]
  - Product use in unapproved indication [Unknown]
